FAERS Safety Report 17807925 (Version 1)
Quarter: 2020Q2

REPORT INFORMATION
  Report Type: Spontaneous
  Country: CA (occurrence: CA)
  Receive Date: 20200520
  Receipt Date: 20200520
  Transmission Date: 20200714
  Serious: Yes (Death, Life-Threatening, Hospitalization)
  Sender: FDA-Public Use
  Company Number: CA-ROCHE-2601473

PATIENT
  Age: 57 Year
  Sex: Male

DRUGS (34)
  1. METHOTREXATE. [Suspect]
     Active Substance: METHOTREXATE
     Indication: RHEUMATOID ARTHRITIS
  2. MINOCYCLINE HYDROCHLORIDE. [Suspect]
     Active Substance: MINOCYCLINE HYDROCHLORIDE
     Indication: PRODUCT USED FOR UNKNOWN INDICATION
     Route: 065
  3. ARAVA [Suspect]
     Active Substance: LEFLUNOMIDE
     Indication: RHEUMATOID ARTHRITIS
     Route: 065
  4. METHOTREXATE. [Suspect]
     Active Substance: METHOTREXATE
     Indication: SYSTEMIC LUPUS ERYTHEMATOSUS
     Route: 013
  5. PLAQUENIL [Suspect]
     Active Substance: HYDROXYCHLOROQUINE SULFATE
     Indication: SYSTEMIC LUPUS ERYTHEMATOSUS
     Route: 065
  6. XELJANZ [Suspect]
     Active Substance: TOFACITINIB CITRATE
     Indication: PRODUCT USED FOR UNKNOWN INDICATION
     Route: 048
  7. HUMIRA [Suspect]
     Active Substance: ADALIMUMAB
     Indication: SYSTEMIC LUPUS ERYTHEMATOSUS
     Route: 058
  8. ORENCIA [Suspect]
     Active Substance: ABATACEPT
     Indication: SYSTEMIC LUPUS ERYTHEMATOSUS
     Route: 042
  9. ORENCIA [Suspect]
     Active Substance: ABATACEPT
     Indication: RHEUMATOID ARTHRITIS
  10. RITUXIMAB. [Concomitant]
     Active Substance: RITUXIMAB
     Route: 065
  11. LYRICA [Concomitant]
     Active Substance: PREGABALIN
     Route: 065
  12. RITUXIMAB. [Suspect]
     Active Substance: RITUXIMAB
     Indication: RHEUMATOID ARTHRITIS
     Route: 042
  13. SODIUM AUROTHIOMALATE [Suspect]
     Active Substance: GOLD SODIUM THIOMALATE
     Indication: SYSTEMIC LUPUS ERYTHEMATOSUS
     Route: 051
  14. ILARIS [Suspect]
     Active Substance: CANAKINUMAB
     Indication: RHEUMATOID ARTHRITIS
     Dosage: SINGLE-USE VIAL
     Route: 058
  15. LEFLUNOMIDE. [Suspect]
     Active Substance: LEFLUNOMIDE
     Indication: RHEUMATOID ARTHRITIS
  16. SODIUM AUROTHIOMALATE [Suspect]
     Active Substance: GOLD SODIUM THIOMALATE
     Indication: RHEUMATOID ARTHRITIS
  17. SULFASALAZINE. [Suspect]
     Active Substance: SULFASALAZINE
     Indication: SYSTEMIC LUPUS ERYTHEMATOSUS
     Route: 065
  18. SULFASALAZINE. [Suspect]
     Active Substance: SULFASALAZINE
     Indication: RHEUMATOID ARTHRITIS
  19. ACTEMRA [Suspect]
     Active Substance: TOCILIZUMAB
     Indication: SYSTEMIC LUPUS ERYTHEMATOSUS
     Route: 065
  20. ANAKINRA [Suspect]
     Active Substance: ANAKINRA
     Indication: SYSTEMIC LUPUS ERYTHEMATOSUS
     Route: 065
  21. HUMIRA [Suspect]
     Active Substance: ADALIMUMAB
     Indication: RHEUMATOID ARTHRITIS
  22. LEFLUNOMIDE. [Suspect]
     Active Substance: LEFLUNOMIDE
     Indication: SYSTEMIC LUPUS ERYTHEMATOSUS
     Route: 048
  23. REMICADE [Suspect]
     Active Substance: INFLIXIMAB
     Indication: SYSTEMIC LUPUS ERYTHEMATOSUS
     Route: 042
  24. REMICADE [Suspect]
     Active Substance: INFLIXIMAB
     Indication: RHEUMATOID ARTHRITIS
  25. CANNABIS SATIVA [Suspect]
     Active Substance: CANNABIS SATIVA FLOWERING TOP
     Indication: PAIN
     Route: 065
  26. ACTEMRA [Suspect]
     Active Substance: TOCILIZUMAB
     Indication: RHEUMATOID ARTHRITIS
  27. RITUXIMAB. [Suspect]
     Active Substance: RITUXIMAB
     Indication: SYSTEMIC LUPUS ERYTHEMATOSUS
     Route: 042
  28. ENBREL [Suspect]
     Active Substance: ETANERCEPT
     Indication: SYSTEMIC LUPUS ERYTHEMATOSUS
     Route: 058
  29. ENBREL [Suspect]
     Active Substance: ETANERCEPT
     Indication: RHEUMATOID ARTHRITIS
  30. ANAKINRA [Suspect]
     Active Substance: ANAKINRA
     Indication: RHEUMATOID ARTHRITIS
  31. ARAVA [Suspect]
     Active Substance: LEFLUNOMIDE
     Indication: SYSTEMIC LUPUS ERYTHEMATOSUS
     Route: 065
  32. PLAQUENIL [Suspect]
     Active Substance: HYDROXYCHLOROQUINE SULFATE
     Indication: RHEUMATOID ARTHRITIS
  33. OXYCODONE [Suspect]
     Active Substance: OXYCODONE
     Indication: PAIN
     Route: 065
  34. GOLD [Suspect]
     Active Substance: GOLD
     Indication: RHEUMATOID ARTHRITIS
     Route: 065

REACTIONS (28)
  - Herpes zoster [Recovered/Resolved]
  - Terminal state [Recovered/Resolved]
  - Pulmonary embolism [Recovered/Resolved]
  - Renal failure [Recovered/Resolved]
  - Haemoglobin decreased [Recovered/Resolved]
  - Joint swelling [Recovered/Resolved]
  - Thrombosis [Recovered/Resolved]
  - Deep vein thrombosis [Recovered/Resolved]
  - Feeling abnormal [Recovered/Resolved]
  - Interstitial lung disease [Recovered/Resolved]
  - Pulmonary thrombosis [Recovered/Resolved]
  - Arthropathy [Recovered/Resolved]
  - Pain [Recovered/Resolved]
  - Photosensitivity reaction [Recovered/Resolved]
  - Sepsis [Recovered/Resolved]
  - Drug intolerance [Recovered/Resolved]
  - Myocardial infarction [Recovered/Resolved]
  - Stomatitis [Recovered/Resolved]
  - Intentional product use issue [Unknown]
  - Off label use [Unknown]
  - Apparent death [Fatal]
  - Diverticulitis [Recovered/Resolved]
  - Drug hypersensitivity [Recovered/Resolved]
  - Red blood cell sedimentation rate increased [Recovered/Resolved]
  - Urticaria [Recovered/Resolved]
  - Contraindicated product administered [Unknown]
  - C-reactive protein abnormal [Recovered/Resolved]
  - Drug ineffective [Unknown]
